FAERS Safety Report 4877718-X (Version None)
Quarter: 2006Q1

REPORT INFORMATION
  Report Type: 
  Country: None (occurrence: None)
  Receive Date: 20060109
  Receipt Date: 20060101
  Transmission Date: 20060701
  Serious: Yes (Other)
  Sender: FDA-Public Use
  Company Number: 2006000968

PATIENT
  Sex: Female

DRUGS (2)
  1. SUDAFED PE SEVERE COLD CAPLET (DIPHENHYDRAMINE, PHENYLEPHRINE, ACETAMI [Suspect]
     Dosage: 2 TABLETS ONCE, ORAL
     Route: 048
     Dates: start: 20060101, end: 20060101
  2. ROBITUSSIN-DM (GUAIFENESIN) [Suspect]
     Dosage: ORAL
     Route: 048

REACTIONS (3)
  - ABNORMAL BEHAVIOUR [None]
  - DIZZINESS [None]
  - MOTOR DYSFUNCTION [None]
